FAERS Safety Report 4453201-0 (Version None)
Quarter: 2004Q3

REPORT INFORMATION
  Report Type: 
  Country: None (occurrence: None)
  Receive Date: 20040901
  Receipt Date: 20030807
  Transmission Date: 20050211
  Serious: Yes (Hospitalization)
  Sender: FDA-Public Use
  Company Number: 137290USA

PATIENT
  Sex: Male

DRUGS (1)
  1. GLYBURIDE [Suspect]
     Indication: BLOOD GLUCOSE
     Dosage: 2.5 MILLIGRAM ORAL
     Route: 048

REACTIONS (2)
  - BLOOD GLUCOSE INCREASED [None]
  - DRUG INEFFECTIVE [None]
